FAERS Safety Report 7747378-9 (Version None)
Quarter: 2011Q3

REPORT INFORMATION
  Report Type: 
  Country: None (occurrence: None)
  Receive Date: 20110913
  Receipt Date: 20110906
  Transmission Date: 20111222
  Serious: Yes (Hospitalization)
  Sender: FDA-Public Use
  Company Number: US-GLAXOSMITHKLINE-A0943464A

PATIENT
  Age: 53 Year
  Sex: Male

DRUGS (12)
  1. LOVAZA [Suspect]
     Indication: BLOOD TRIGLYCERIDES INCREASED
     Dosage: 2CAP TWICE PER DAY
     Route: 048
     Dates: start: 20060901
  2. BENICAR [Concomitant]
  3. CRESTOR [Concomitant]
  4. JANUVIA [Concomitant]
  5. METOPROLOL SUCCINATE [Concomitant]
  6. METFORMIN HCL [Concomitant]
  7. ZETIA [Concomitant]
  8. LAMICTAL [Suspect]
     Indication: PRODUCT USED FOR UNKNOWN INDICATION
     Dosage: 100MG TWICE PER DAY
     Route: 048
     Dates: start: 20070901
  9. LANTUS [Concomitant]
  10. PROTONIX [Concomitant]
  11. ASPIRIN [Concomitant]
  12. PLAVIX [Concomitant]

REACTIONS (4)
  - LOCALISED INFECTION [None]
  - ILL-DEFINED DISORDER [None]
  - PANCREATITIS [None]
  - CORONARY ARTERIAL STENT INSERTION [None]
